FAERS Safety Report 10183676 (Version 2)
Quarter: 2014Q2

REPORT INFORMATION
  Report Type: Report from Study
  Country: US (occurrence: US)
  Receive Date: 20140520
  Receipt Date: 20140520
  Transmission Date: 20141212
  Serious: Yes (Death, Hospitalization)
  Sender: FDA-Public Use
  Company Number: US-ROCHE-1365216

PATIENT
  Sex: Female

DRUGS (9)
  1. XELODA [Suspect]
     Indication: BREAST CANCER METASTATIC
     Dosage: 2 TABLETS TWICE A DAY
     Route: 048
     Dates: start: 201311, end: 2014
  2. TRASTUZUMAB EMTANSINE [Suspect]
     Indication: BREAST CANCER METASTATIC
     Route: 065
  3. HERCEPTIN [Suspect]
     Indication: BREAST CANCER METASTATIC
     Route: 065
  4. KEPPRA [Concomitant]
     Indication: CONVULSION
  5. ATIVAN [Concomitant]
  6. OXYCODONE [Concomitant]
     Route: 065
  7. FENTANYL PATCH [Concomitant]
     Route: 065
  8. METHADONE [Concomitant]
  9. DEXAMETHASONE [Concomitant]

REACTIONS (11)
  - Death [Fatal]
  - Headache [Unknown]
  - Drug ineffective [Unknown]
  - Vomiting [Unknown]
  - Brain oedema [Unknown]
  - Nausea [Unknown]
  - Decreased appetite [Unknown]
  - Incontinence [Unknown]
  - Abasia [Unknown]
  - Incoherent [Unknown]
  - Visual acuity reduced [Unknown]
